FAERS Safety Report 6169750-3 (Version None)
Quarter: 2009Q2

REPORT INFORMATION
  Report Type: 
  Country: None (occurrence: None)
  Receive Date: 20090428
  Receipt Date: 20090413
  Transmission Date: 20091009
  Serious: Yes (Other)
  Sender: FDA-Public Use
  Company Number: IT-ROCHE-627342

PATIENT
  Age: 63 Year
  Sex: Male

DRUGS (8)
  1. MYCOPHENOLATE MOFETIL [Suspect]
     Route: 065
  2. PEGASYS [Suspect]
     Indication: HEPATITIS C
     Dosage: DOSE: 180 UG/ML/WEEK
     Route: 065
  3. RIBAVIRIN [Suspect]
     Indication: HEPATITIS C
     Dosage: DOSE: 600 MG/DIE
     Route: 065
  4. CYCLOSPORINE [Suspect]
     Route: 065
  5. STEROID NOS [Suspect]
     Route: 065
  6. AZATHIOPRINE [Suspect]
     Route: 065
  7. PREDNISONE TAB [Suspect]
     Route: 065
  8. PREDNISONE TAB [Suspect]
     Dosage: DOSAGE GRADUALLY TAPERED
     Route: 065

REACTIONS (7)
  - DIARRHOEA [None]
  - HEPATIC FUNCTION ABNORMAL [None]
  - HEPATITIS C VIRUS TEST [None]
  - HYPERAEMIA [None]
  - PRURITUS [None]
  - SERUM FERRITIN INCREASED [None]
  - SKIN EXFOLIATION [None]
